FAERS Safety Report 8193789-X (Version None)
Quarter: 2012Q1

REPORT INFORMATION
  Report Type: 
  Country: None (occurrence: None)
  Receive Date: 20120308
  Receipt Date: 20120305
  Transmission Date: 20120608
  Serious: Yes (Other)
  Sender: FDA-Public Use
  Company Number: US-PFIZER INC-2012058797

PATIENT
  Sex: Male
  Weight: 104.31 kg

DRUGS (4)
  1. PROMETHAZINE [Concomitant]
  2. ZOLOFT [Suspect]
     Indication: DEPRESSION
     Dosage: 100 MG, 1X/DAY
     Route: 048
  3. CELEBREX [Suspect]
     Indication: ARTHRITIS
     Dosage: 200 MG, 1X/DAY
     Route: 048
  4. CARDURA [Suspect]
     Indication: PROSTATOMEGALY
     Dosage: 8 MG, 1X/DAY
     Route: 048

REACTIONS (1)
  - CHONDROPATHY [None]
